FAERS Safety Report 10518547 (Version 1)
Quarter: 2014Q4

REPORT INFORMATION
  Report Type: Spontaneous
  Country: DE (occurrence: DE)
  Receive Date: 20141015
  Receipt Date: 20141015
  Transmission Date: 20150528
  Serious: Yes (Hospitalization)
  Sender: FDA-Public Use
  Company Number: DE-LEO PHARMA-220841

PATIENT
  Age: 67 Year
  Sex: Male

DRUGS (2)
  1. PICATO [Suspect]
     Active Substance: INGENOL MEBUTATE
     Indication: ACTINIC KERATOSIS
     Route: 061
     Dates: start: 20130121, end: 20130124
  2. SANDIMMUNE [Suspect]
     Active Substance: CYCLOSPORINE
     Indication: HEART TRANSPLANT

REACTIONS (2)
  - Herpes zoster [Recovering/Resolving]
  - Drug administered at inappropriate site [Recovering/Resolving]

NARRATIVE: CASE EVENT DATE: 20130228
